FAERS Safety Report 19187175 (Version 1)
Quarter: 2021Q2

REPORT INFORMATION
  Report Type: Spontaneous
  Country: CN (occurrence: CN)
  Receive Date: 20210427
  Receipt Date: 20210427
  Transmission Date: 20210717
  Serious: Yes (Hospitalization)
  Sender: FDA-Public Use
  Company Number: CN-BAYER-2021-130576

PATIENT
  Age: 64 Year
  Sex: Female
  Weight: 65 kg

DRUGS (2)
  1. IOPROMIDE. [Suspect]
     Active Substance: IOPROMIDE
     Indication: ANGIOGRAM
     Dosage: 160 MG, ONCE
     Route: 037
     Dates: start: 20210308, end: 20210308
  2. IOPROMIDE. [Suspect]
     Active Substance: IOPROMIDE
     Indication: PERCUTANEOUS CORONARY INTERVENTION

REACTIONS (5)
  - Incorrect route of product administration [None]
  - Dizziness [Recovering/Resolving]
  - Contrast encephalopathy [Recovering/Resolving]
  - IIIrd nerve paralysis [Recovering/Resolving]
  - Product prescribing error [None]

NARRATIVE: CASE EVENT DATE: 20210308
